FAERS Safety Report 23674342 (Version 1)
Quarter: 2024Q1

REPORT INFORMATION
  Report Type: Spontaneous
  Country: US (occurrence: US)
  Receive Date: 20240326
  Receipt Date: 20240326
  Transmission Date: 20240410
  Serious: Yes (Other)
  Sender: FDA-Public Use
  Company Number: US-GSK-US2024035376

PATIENT

DRUGS (8)
  1. TRIUMEQ [Suspect]
     Active Substance: ABACAVIR SULFATE\DOLUTEGRAVIR SODIUM\LAMIVUDINE
     Indication: Polycystic ovarian syndrome
     Dosage: 1 DF, QD, 600-50-300 MG, 30 DAYS, 30 REFILS
     Route: 048
  2. VENTOLIN HFA [Suspect]
     Active Substance: ALBUTEROL SULFATE
     Indication: Asthma
     Dosage: 1 PUFF(S), AS NEEDED INHALATION EVERY 4 HOURS, 30 DAYS
     Route: 055
  3. SINGULAIR [Suspect]
     Active Substance: MONTELUKAST SODIUM
     Indication: Asthma
     Dosage: 1 DF, QD,
     Route: 048
  4. VOLTAREN [Suspect]
     Active Substance: DICLOFENAC SODIUM
     Indication: Product used for unknown indication
     Dosage: UNK UNK, Q4D
     Route: 062
  5. BACLOFEN [Suspect]
     Active Substance: BACLOFEN
     Indication: Back pain
     Dosage: 1 DF, BID
     Route: 048
  6. BACLOFEN [Suspect]
     Active Substance: BACLOFEN
     Indication: Sciatica
  7. BACLOFEN [Suspect]
     Active Substance: BACLOFEN
     Indication: HIV infection
  8. EXCEDRIN [Suspect]
     Active Substance: ACETAMINOPHEN\ASPIRIN\CAFFEINE
     Indication: Migraine
     Dosage: 2 DF, QD, 250-250-65 MG
     Route: 048

REACTIONS (6)
  - Polycystic ovarian syndrome [Unknown]
  - Asthma [Unknown]
  - Ophthalmoplegic migraine [Unknown]
  - Back pain [Unknown]
  - Sciatica [Unknown]
  - Product use in unapproved indication [Unknown]
